FAERS Safety Report 17022463 (Version 4)
Quarter: 2019Q4

REPORT INFORMATION
  Report Type: Report from Study
  Country: CA (occurrence: CA)
  Receive Date: 20191112
  Receipt Date: 20191231
  Transmission Date: 20200122
  Serious: Yes (Other)
  Sender: FDA-Public Use
  Company Number: CA-JNJFOC-20191103223

PATIENT
  Age: 54 Year
  Sex: Female
  Weight: 69.4 kg

DRUGS (2)
  1. STELARA [Suspect]
     Active Substance: USTEKINUMAB
     Route: 058
     Dates: start: 20190906
  2. STELARA [Suspect]
     Active Substance: USTEKINUMAB
     Indication: CROHN^S DISEASE
     Route: 058
     Dates: start: 20130204

REACTIONS (4)
  - Small intestinal resection [Not Recovered/Not Resolved]
  - Hernia [Unknown]
  - Postoperative wound complication [Unknown]
  - Myalgia [Unknown]

NARRATIVE: CASE EVENT DATE: 2019
